FAERS Safety Report 23575732 (Version 1)
Quarter: 2024Q1

REPORT INFORMATION
  Report Type: Spontaneous
  Country: CA (occurrence: CA)
  Receive Date: 20240228
  Receipt Date: 20240228
  Transmission Date: 20240410
  Serious: Yes (Other)
  Sender: FDA-Public Use
  Company Number: CA-LEO Pharma-367940

PATIENT
  Age: 61 Year
  Sex: Male

DRUGS (2)
  1. PROTOPIC [Suspect]
     Active Substance: TACROLIMUS
     Indication: Skin depigmentation
     Dosage: MAINTENANCE
     Route: 003
  2. PROTOPIC [Suspect]
     Active Substance: TACROLIMUS
     Indication: Skin depigmentation
     Route: 003

REACTIONS (2)
  - Vitiligo [Recovering/Resolving]
  - Product use in unapproved indication [Unknown]
